FAERS Safety Report 5030540-6 (Version None)
Quarter: 2006Q2

REPORT INFORMATION
  Report Type: 
  Country: None (occurrence: None)
  Receive Date: 20060614
  Receipt Date: 20060526
  Transmission Date: 20061013
  Serious: Yes (Death)
  Sender: FDA-Public Use
  Company Number: CA200605006259

PATIENT
  Sex: Female

DRUGS (3)
  1. HUMALOG [Suspect]
  2. HUMULIN N [Suspect]
  3. HP ERGO, UNKNOWN PEN BODY TYPE (HUMAPEN ERGO, UNKNOWN PEN BODY TYPE) [Concomitant]

REACTIONS (1)
  - DEATH [None]
